FAERS Safety Report 4673029-6 (Version None)
Quarter: 2005Q2

REPORT INFORMATION
  Report Type: 
  Country: None (occurrence: None)
  Receive Date: 20050524
  Receipt Date: 20050509
  Transmission Date: 20051028
  Serious: Yes (Hospitalization)
  Sender: FDA-Public Use
  Company Number: 02100-JPN-05-0083

PATIENT
  Age: 80 Year
  Sex: Male

DRUGS (6)
  1. CILOSTAZOL [Suspect]
     Indication: LACUNAR INFARCTION
     Dosage: 200 MG, ORAL
     Route: 048
     Dates: start: 20040625, end: 20050313
  2. CILOSTAZOL [Suspect]
     Indication: LACUNAR INFARCTION
     Dosage: 200 MG, ORAL
     Route: 048
     Dates: start: 20050418
  3. HUMAN INSULIN (GENETICAL RECOMBINATION) [Concomitant]
  4. TIAPRIDE HYDROCHLORIDE [Concomitant]
  5. DROXIDOPA [Concomitant]
  6. CETIRIZINE HCL [Concomitant]

REACTIONS (18)
  - BLOOD CHLORIDE ABNORMAL [None]
  - BLOOD CREATININE ABNORMAL [None]
  - BLOOD LACTATE DEHYDROGENASE ABNORMAL [None]
  - BLOOD TEST ABNORMAL [None]
  - CARDIAC FAILURE ACUTE [None]
  - DIARRHOEA [None]
  - DYSPEPSIA [None]
  - EXOCRINE PANCREATIC FUNCTION TEST ABNORMAL [None]
  - HAEMATOCRIT ABNORMAL [None]
  - HYPOKALAEMIA [None]
  - INFLAMMATION [None]
  - INFLUENZA [None]
  - MALABSORPTION [None]
  - NEUTROPHIL COUNT ABNORMAL [None]
  - ORTHOPNOEA [None]
  - OXYGEN SATURATION DECREASED [None]
  - PYREXIA [None]
  - RED BLOOD CELL ABNORMALITY [None]
